FAERS Safety Report 19659993 (Version 1)
Quarter: 2021Q3

REPORT INFORMATION
  Report Type: Spontaneous
  Country: US (occurrence: US)
  Receive Date: 20210802
  Receipt Date: 20210802
  Transmission Date: 20211014
  Serious: No
  Sender: FDA-Public Use
  Company Number: None

PATIENT

DRUGS (2)
  1. DILTIAZEM HCL [Suspect]
     Active Substance: DILTIAZEM HYDROCHLORIDE
     Route: 042
  2. DEXMEDETOMIDINE. [Suspect]
     Active Substance: DEXMEDETOMIDINE
     Dosage: STRENGTH: 400MCG/100 ML

REACTIONS (4)
  - Product barcode issue [None]
  - Wrong technique in product usage process [None]
  - Product storage error [None]
  - Wrong product administered [None]
